FAERS Safety Report 17072352 (Version 1)
Quarter: 2019Q4

REPORT INFORMATION
  Report Type: Spontaneous
  Country: JP (occurrence: JP)
  Receive Date: 20191125
  Receipt Date: 20191125
  Transmission Date: 20200122
  Serious: Yes (Life-Threatening, Hospitalization)
  Sender: FDA-Public Use
  Company Number: JP-ASTRAZENECA-2019SF67603

PATIENT
  Age: 87 Year
  Sex: Female
  Weight: 52 kg

DRUGS (20)
  1. IRESSA [Suspect]
     Active Substance: GEFITINIB
     Indication: NON-SMALL CELL LUNG CANCER
     Route: 048
     Dates: start: 20180411, end: 20180703
  2. TAGRISSO [Suspect]
     Active Substance: OSIMERTINIB
     Indication: NON-SMALL CELL LUNG CANCER
     Route: 048
     Dates: start: 20181031, end: 20190724
  3. RINDERON V [Concomitant]
     Active Substance: BETAMETHASONE VALERATE
     Dosage: DOSE UNKNOWN
     Route: 062
  4. ATORVASTATIN [Concomitant]
     Active Substance: ATORVASTATIN
     Dosage: DOSE UNKNOWN
     Route: 048
  5. BISOPROLOL FUMARATE. [Concomitant]
     Active Substance: BISOPROLOL FUMARATE
     Dosage: DOSE UNKNOWN
     Route: 048
  6. HIRUDOID [Concomitant]
     Active Substance: GLYCOSAMINOGLYCANS
     Dosage: DOSE UNKNOWN
     Route: 062
  7. ANTEBATE:OINTMENT [Concomitant]
     Dosage: DOSE UNKNOWN
     Route: 062
  8. EFIENT [Concomitant]
     Active Substance: PRASUGREL HYDROCHLORIDE
     Dosage: DOSE UNKNOWN
     Route: 048
  9. ZETIA [Concomitant]
     Active Substance: EZETIMIBE
     Dosage: DOSE UNKNOWN
     Route: 048
  10. TAKECAB [Concomitant]
     Active Substance: VONOPRAZAN FUMURATE
     Dosage: DOSE UNKNOWN
     Route: 048
  11. IRESSA [Suspect]
     Active Substance: GEFITINIB
     Indication: NON-SMALL CELL LUNG CANCER
     Route: 048
     Dates: start: 20180704, end: 20180905
  12. TAGRISSO [Suspect]
     Active Substance: OSIMERTINIB
     Indication: NON-SMALL CELL LUNG CANCER
     Route: 048
     Dates: start: 20190725
  13. SELARA [Concomitant]
     Active Substance: EPLERENONE
     Dosage: DOSE UNKNOWN
     Route: 048
  14. GLYCYRON [Concomitant]
  15. URSODEOXYCHOLIC ACID [Concomitant]
     Active Substance: URSODIOL
  16. LOCOID [Concomitant]
     Active Substance: HYDROCORTISONE BUTYRATE
     Dosage: DOSE UNKNOWN
     Route: 062
  17. FEXOFENADINE HYDROCHLORIDE. [Concomitant]
     Active Substance: FEXOFENADINE HYDROCHLORIDE
     Dosage: DOSE UNKNOWN
     Route: 065
  18. BELSOMRA [Concomitant]
     Active Substance: SUVOREXANT
     Dosage: DOSE UNKNOWN
     Route: 048
  19. BAYASPIRIN [Concomitant]
     Active Substance: ASPIRIN
     Dosage: DOSE UNKNOWN
     Route: 048
  20. HEPARINOID [Concomitant]
     Active Substance: CHONDROITIN SULFATE (BOVINE)
     Dosage: DOSE UNKNOWN
     Route: 062

REACTIONS (10)
  - Myocardial infarction [Recovered/Resolved]
  - Diarrhoea [Unknown]
  - Periodontitis [Unknown]
  - Decreased appetite [Unknown]
  - Paronychia [Recovering/Resolving]
  - Stomatitis [Unknown]
  - Off label use [Unknown]
  - Palmar-plantar erythrodysaesthesia syndrome [Unknown]
  - Cutaneous symptom [Unknown]
  - Hepatic function abnormal [Unknown]

NARRATIVE: CASE EVENT DATE: 2018
